FAERS Safety Report 6328039-X (Version None)
Quarter: 2009Q3

REPORT INFORMATION
  Report Type: 
  Country: None (occurrence: None)
  Receive Date: 20090825
  Receipt Date: 20080915
  Transmission Date: 20100115
  Serious: No
  Sender: FDA-Public Use
  Company Number: US-ABBOTT-08P-163-0476219-00

PATIENT
  Sex: Female

DRUGS (2)
  1. SYNTHROID [Suspect]
     Indication: HYPOTHYROIDISM
     Dosage: LAVENDER PILL
     Route: 048
  2. SYNTHROID [Suspect]
     Dosage: NOT REPORTED
     Dates: start: 20080913

REACTIONS (2)
  - MIDDLE INSOMNIA [None]
  - SLEEP DISORDER [None]
